FAERS Safety Report 23080244 (Version 1)
Quarter: 2023Q4

REPORT INFORMATION
  Report Type: Spontaneous
  Country: US (occurrence: None)
  Receive Date: 20231018
  Receipt Date: 20231018
  Transmission Date: 20240109
  Serious: Yes (Hospitalization)
  Sender: FDA-Public Use
  Company Number: None

PATIENT
  Age: 53 Year
  Sex: Male
  Weight: 82 kg

DRUGS (1)
  1. ATOMOXETINE [Suspect]
     Active Substance: ATOMOXETINE
     Dosage: FREQUENCY : DAILY;?
     Route: 048
     Dates: start: 20221114, end: 20221208

REACTIONS (2)
  - Urinary retention [None]
  - Pollakiuria [None]

NARRATIVE: CASE EVENT DATE: 20221208
